FAERS Safety Report 15295826 (Version 3)
Quarter: 2018Q3

REPORT INFORMATION
  Report Type: Report from Study
  Country: JP (occurrence: JP)
  Receive Date: 20180820
  Receipt Date: 20180907
  Transmission Date: 20181010
  Serious: Yes (Hospitalization)
  Sender: FDA-Public Use
  Company Number: JP-B.I. PHARMACEUTICALS,INC./RIDGEFIELD-2018-NB-002705

PATIENT
  Age: 80 Year
  Sex: Female
  Weight: 33.4 kg

DRUGS (5)
  1. AFATINIB [Suspect]
     Active Substance: AFATINIB
     Route: 048
     Dates: start: 20180522, end: 20180810
  2. LANSOPRAZOLE. [Concomitant]
     Active Substance: LANSOPRAZOLE
     Indication: PROPHYLAXIS
     Route: 048
     Dates: start: 20180517
  3. AFATINIB [Suspect]
     Active Substance: AFATINIB
     Indication: NON-SMALL CELL LUNG CANCER
     Route: 048
     Dates: start: 20161115, end: 20180516
  4. CALONAL [Concomitant]
     Active Substance: ACETAMINOPHEN
     Indication: PAIN
     Route: 048
     Dates: start: 20180517, end: 20180522
  5. OXYCODONE [Concomitant]
     Active Substance: OXYCODONE
     Indication: PAIN
     Route: 048
     Dates: start: 20180517, end: 20180522

REACTIONS (7)
  - Malaise [Unknown]
  - Dementia Alzheimer^s type [Unknown]
  - Dehydration [Recovered/Resolved]
  - Decreased appetite [Unknown]
  - Altered state of consciousness [Unknown]
  - Renal impairment [Unknown]
  - Dehydration [Not Recovered/Not Resolved]

NARRATIVE: CASE EVENT DATE: 20180516
